FAERS Safety Report 14314164 (Version 2)
Quarter: 2018Q1

REPORT INFORMATION
  Report Type: Spontaneous
  Country: FR (occurrence: FR)
  Receive Date: 20171221
  Receipt Date: 20180216
  Transmission Date: 20180509
  Serious: Yes (Death, Other)
  Sender: FDA-Public Use
  Company Number: FR-INTERCEPT-PMOCA2017001616

PATIENT

DRUGS (16)
  1. LERCAPRESS [Concomitant]
     Active Substance: ENALAPRIL MALEATE\LERCANIDIPINE HYDROCHLORIDE
  2. PREVISCAN (FLUINDIONE) [Suspect]
     Active Substance: FLUINDIONE
     Indication: CARDIAC DISORDER
  3. METFORMINE [Concomitant]
     Active Substance: METFORMIN HYDROCHLORIDE
  4. AERIUS [Concomitant]
     Active Substance: DESLORATADINE
  5. INEXIUM (ESOMEPRAZOLE SODIUM) [Concomitant]
     Active Substance: ESOMEPRAZOLE SODIUM
  6. OCALIVA [Suspect]
     Active Substance: OBETICHOLIC ACID
     Indication: PRIMARY BILIARY CHOLANGITIS
     Dosage: 5 MG, QD
     Route: 048
     Dates: start: 20171010
  7. DIGOXINE [Concomitant]
     Active Substance: DIGOXIN
  8. DELURSAN [Concomitant]
     Active Substance: URSODIOL
  9. ALDACTONE [Concomitant]
     Active Substance: SPIRONOLACTONE
  10. BISOCE [Concomitant]
     Active Substance: BISOPROLOL
  11. URSODEOXYCHOLIC ACID [Concomitant]
     Active Substance: URSODIOL
  12. DUPHALAC [Concomitant]
     Active Substance: LACTULOSE
  13. ZOXAN (CIPROFLOXACIN LACTATE) [Concomitant]
     Active Substance: CIPROFLOXACIN LACTATE
  14. GAVISCON (CALCIUM CARBONATE\POTASSIUM BICARBONATE\SODIUM ALGINATE) [Concomitant]
     Active Substance: CALCIUM CARBONATE\POTASSIUM BICARBONATE\SODIUM ALGINATE
  15. NORPROLAC [Concomitant]
     Active Substance: QUINAGOLIDE HYDROCHLORIDE
  16. LAMALINE [Concomitant]
     Active Substance: ACETAMINOPHEN\CAFFEINE\OPIUM

REACTIONS (2)
  - Fall [Unknown]
  - Cerebral haemorrhage [Fatal]

NARRATIVE: CASE EVENT DATE: 2017
